FAERS Safety Report 6088164-8 (Version None)
Quarter: 2009Q1

REPORT INFORMATION
  Report Type: 
  Country: None (occurrence: None)
  Receive Date: 20090224
  Receipt Date: 20090219
  Transmission Date: 20090719
  Serious: Yes (Life-Threatening, Hospitalization, Other)
  Sender: FDA-Public Use
  Company Number: PHHY2008JP28167

PATIENT
  Age: 44 Year
  Sex: Male

DRUGS (3)
  1. VOLTAREN [Suspect]
     Indication: MENINGITIS
     Dosage: 50 MG 2 TO 3 TIMES
     Route: 054
     Dates: start: 20081101
  2. VOLTAREN [Suspect]
     Indication: HEADACHE
  3. MAXALT [Concomitant]
     Indication: MIGRAINE
     Dosage: UNK
     Route: 048
     Dates: start: 20081101, end: 20081101

REACTIONS (2)
  - DISSEMINATED INTRAVASCULAR COAGULATION [None]
  - PERIPHERAL VASCULAR DISORDER [None]
